FAERS Safety Report 6809232-6 (Version None)
Quarter: 2010Q2

REPORT INFORMATION
  Report Type: 
  Country: None (occurrence: None)
  Receive Date: 20100630
  Receipt Date: 20100621
  Transmission Date: 20101027
  Serious: Yes (Hospitalization)
  Sender: FDA-Public Use
  Company Number: 2009BI036797

PATIENT
  Age: 50 Year
  Sex: Female
  Weight: 61 kg

DRUGS (5)
  1. TYSABRI [Suspect]
     Indication: MULTIPLE SCLEROSIS
     Route: 042
     Dates: start: 20050202, end: 20050203
  2. TYSABRI [Suspect]
     Route: 042
     Dates: start: 20071018, end: 20090709
  3. TYSABRI [Suspect]
     Dates: start: 20100318
  4. VITAMIN D3 [Concomitant]
     Indication: DRUG USE FOR UNKNOWN INDICATION
  5. MULTI-VITAMIN [Concomitant]
     Indication: SUPPLEMENTATION THERAPY

REACTIONS (8)
  - ALOPECIA [None]
  - CONSTIPATION [None]
  - DEPRESSED MOOD [None]
  - FATIGUE [None]
  - MULTIPLE SCLEROSIS RELAPSE [None]
  - STRESS URINARY INCONTINENCE [None]
  - TRICHORRHEXIS [None]
  - VISION BLURRED [None]
